FAERS Safety Report 6794498-1 (Version None)
Quarter: 2010Q2

REPORT INFORMATION
  Report Type: 
  Country: None (occurrence: None)
  Receive Date: 20100625
  Receipt Date: 20100614
  Transmission Date: 20101027
  Serious: Yes (Other)
  Sender: FDA-Public Use
  Company Number: US-PFIZER INC-2010073399

PATIENT
  Sex: Male

DRUGS (2)
  1. XANAX [Suspect]
     Dosage: 3 MG, UNK
     Route: 048
  2. UROXATRAL [Suspect]
     Indication: PROSTATIC PAIN
     Dosage: UNK
     Route: 048

REACTIONS (4)
  - DRUG INEFFECTIVE [None]
  - FEELING ABNORMAL [None]
  - PROSTATIC PAIN [None]
  - WITHDRAWAL SYNDROME [None]
